FAERS Safety Report 15209830 (Version 1)
Quarter: 2018Q4

REPORT INFORMATION
  Report Type: Spontaneous
  Country: US (occurrence: US)
  Receive Date: 20180727
  Receipt Date: 20180727
  Transmission Date: 20190204
  Serious: Yes (Other)
  Sender: FDA-Public Use
  Company Number: US-TAIHO ONCOLOGY  INC-EU-2018-00883

PATIENT
  Age: 66 Year
  Sex: Female
  Weight: 61.74 kg

DRUGS (2)
  1. PERCOCET [Concomitant]
     Active Substance: ACETAMINOPHEN\OXYCODONE HYDROCHLORIDE
     Dosage: 10MG-325MG
     Route: 048
  2. LONSURF [Suspect]
     Active Substance: TIPIRACIL HYDROCHLORIDE\TRIFLURIDINE
     Indication: COLON CANCER RECURRENT
     Route: 048
     Dates: start: 20180212, end: 2018

REACTIONS (6)
  - Intestinal obstruction [Unknown]
  - Drug intolerance [Unknown]
  - Constipation [Unknown]
  - Essential hypertension [Unknown]
  - Malaise [Unknown]
  - Disease progression [Unknown]

NARRATIVE: CASE EVENT DATE: 2018
